FAERS Safety Report 6964958-9 (Version None)
Quarter: 2010Q3

REPORT INFORMATION
  Report Type: 
  Country: None (occurrence: None)
  Receive Date: 20100903
  Receipt Date: 20100821
  Transmission Date: 20110219
  Serious: Yes (Hospitalization, Other)
  Sender: FDA-Public Use
  Company Number: CA-ELI_LILLY_AND_COMPANY-CA201008006422

PATIENT
  Age: 69 Year
  Sex: Female

DRUGS (10)
  1. FORTEO [Suspect]
     Indication: OSTEOPOROSIS
     Dosage: 20 UG, DAILY (1/D)
     Route: 058
     Dates: start: 20090601
  2. PREDNISONE [Concomitant]
  3. PLAQUENIL [Concomitant]
  4. SYNTHROID [Concomitant]
  5. LYRICA [Concomitant]
  6. ATROVENT [Concomitant]
  7. ADVAIR DISKUS 100/50 [Concomitant]
  8. MIRTAZAPINE [Concomitant]
  9. CALCIUM [Concomitant]
  10. VITAMIN D [Concomitant]

REACTIONS (2)
  - FALL [None]
  - HIP FRACTURE [None]
